FAERS Safety Report 9946834 (Version 1)
Quarter: 2014Q1

REPORT INFORMATION
  Report Type: Report from Study
  Country: US (occurrence: US)
  Receive Date: 20140303
  Receipt Date: 20140303
  Transmission Date: 20141002
  Serious: No
  Sender: FDA-Public Use
  Company Number: US-ABBVIE-13P-163-1063415-00

PATIENT
  Age: 35 Year
  Sex: Female

DRUGS (7)
  1. HUMIRA [Suspect]
     Indication: CROHN^S DISEASE
     Route: 058
     Dates: start: 201301
  2. ASACOL HD [Concomitant]
     Indication: CROHN^S DISEASE
  3. ZOLOFT [Concomitant]
     Indication: ANXIETY
  4. JUNEL FE [Concomitant]
     Indication: CONTRACEPTION
     Dosage: 1/20 1 A DAY
  5. MULTIVITAMIN [Concomitant]
     Indication: PRODUCT USED FOR UNKNOWN INDICATION
  6. VITAMIN B-COMPLEX + FOLIC ACID + VITAMIN C [Concomitant]
     Indication: SUPPLEMENTATION THERAPY
  7. CITRACEL + D [Concomitant]
     Indication: SUPPLEMENTATION THERAPY
     Dosage: 630 MG 500 IU 1 A DAY

REACTIONS (2)
  - Alopecia [Not Recovered/Not Resolved]
  - Alopecia [Not Recovered/Not Resolved]
